FAERS Safety Report 6121600-7 (Version None)
Quarter: 2009Q1

REPORT INFORMATION
  Report Type: 
  Country: None (occurrence: None)
  Receive Date: 20090317
  Receipt Date: 20090312
  Transmission Date: 20090719
  Serious: Yes (Other)
  Sender: FDA-Public Use
  Company Number: US-JNJCH-2009007042

PATIENT
  Age: 38 Year
  Sex: Male
  Weight: 108.9 kg

DRUGS (1)
  1. LISTERINE WHITENING PRE-BRUSH RINSE [Suspect]
     Indication: DENTAL CARE
     Dosage: TEXT:15ML ONCE
     Route: 048
     Dates: start: 20090309, end: 20090310

REACTIONS (3)
  - APPLICATION SITE BURN [None]
  - GINGIVAL DISORDER [None]
  - STOMATITIS [None]
